FAERS Safety Report 17821824 (Version 3)
Quarter: 2020Q3

REPORT INFORMATION
  Report Type: Report from Study
  Country: None (occurrence: US)
  Receive Date: 20200525
  Receipt Date: 20200728
  Transmission Date: 20201102
  Serious: Yes (Hospitalization)
  Sender: FDA-Public Use
  Company Number: US-ABBVIE-20K-163-3411668-00

PATIENT
  Age: 76 Year
  Sex: Female
  Weight: 43.13 kg

DRUGS (1)
  1. CREON [Suspect]
     Active Substance: PANCRELIPASE AMYLASE\PANCRELIPASE LIPASE\PANCRELIPASE PROTEASE
     Indication: HEPATITIS C
     Dosage: 2 CAP. FOR BREAKFAST, 2 CAP. FOR LUNCH, 1 CAP. FOR SNACKS AND 2 CAP. FOR DINNER
     Route: 048
     Dates: start: 20200509

REACTIONS (5)
  - Cystitis [Recovered/Resolved]
  - Constipation [Recovered/Resolved]
  - Cystitis [Recovered/Resolved]
  - Diarrhoea [Recovered/Resolved]
  - Muscle spasms [Recovered/Resolved]

NARRATIVE: CASE EVENT DATE: 202005
